FAERS Safety Report 14940044 (Version 1)
Quarter: 2018Q2

REPORT INFORMATION
  Report Type: Spontaneous
  Country: FR (occurrence: FR)
  Receive Date: 20180525
  Receipt Date: 20180525
  Transmission Date: 20180711
  Serious: Yes (Hospitalization)
  Sender: FDA-Public Use
  Company Number: FR-PFIZER INC-2018210614

PATIENT
  Age: 11 Year
  Sex: Male
  Weight: 34.8 kg

DRUGS (1)
  1. ADVIL [Suspect]
     Active Substance: IBUPROFEN
     Indication: SINUSITIS
     Dosage: UNK
     Route: 048
     Dates: start: 20180310, end: 20180311

REACTIONS (1)
  - Brain empyema [Not Recovered/Not Resolved]

NARRATIVE: CASE EVENT DATE: 20180312
